FAERS Safety Report 10100669 (Version 3)
Quarter: 2014Q2

REPORT INFORMATION
  Report Type: Report from Study
  Country: US (occurrence: US)
  Receive Date: 20140423
  Receipt Date: 20140430
  Transmission Date: 20141212
  Serious: Yes (Hospitalization)
  Sender: FDA-Public Use
  Company Number: US-ACTELION-A-US2014-96354

PATIENT
  Age: 83 Year
  Sex: Female

DRUGS (9)
  1. TRACLEER [Suspect]
     Indication: PULMONARY ARTERIAL HYPERTENSION
     Dosage: 125 MG, BID
     Route: 048
     Dates: start: 2005
  2. TRACLEER [Suspect]
     Dosage: 62.5 MG, BID
     Route: 048
     Dates: start: 2005, end: 2005
  3. METHADONE [Concomitant]
     Dosage: 10 MG, BID
  4. METHADONE [Concomitant]
     Dosage: 5 MG, QPM
  5. FUROSEMIDE [Concomitant]
     Dosage: 40 MG, QD
  6. HYDROCHOROTHIAZIDE [Concomitant]
     Dosage: 25 MG, QD
  7. POTASSIUM [Concomitant]
     Dosage: 20 MEQ, QD
  8. ZOLPIDEM [Concomitant]
     Dosage: 10 MG, QD
  9. SIMVASTATIN [Concomitant]
     Dosage: 40 MG, QD

REACTIONS (7)
  - Depression [Not Recovered/Not Resolved]
  - Mental disorder [Unknown]
  - Electroconvulsive therapy [Unknown]
  - Anxiety [Not Recovered/Not Resolved]
  - Syncope [Unknown]
  - Panic attack [Unknown]
  - Oxygen saturation decreased [Unknown]
